FAERS Safety Report 4474681-0 (Version None)
Quarter: 2004Q4

REPORT INFORMATION
  Report Type: 
  Country: None (occurrence: None)
  Receive Date: 20041012
  Receipt Date: 20040927
  Transmission Date: 20050328
  Serious: No
  Sender: FDA-Public Use
  Company Number: 2004CG01916

PATIENT
  Age: 55 Year
  Sex: Female

DRUGS (1)
  1. NOLVADEX ^ASTRAZENECA^ [Suspect]
     Indication: BREAST CANCER
     Dosage: 20 MG QD PO
     Route: 048
     Dates: start: 19950101

REACTIONS (5)
  - FOREIGN BODY TRAUMA [None]
  - INFLAMMATION [None]
  - URETERAL DISORDER [None]
  - VAGINAL LESION [None]
  - VULVAL DISORDER [None]
